FAERS Safety Report 16232564 (Version 2)
Quarter: 2019Q2

REPORT INFORMATION
  Report Type: Spontaneous
  Country: CH (occurrence: CH)
  Receive Date: 20190424
  Receipt Date: 20190503
  Transmission Date: 20190711
  Serious: Yes (Hospitalization, Other)
  Sender: FDA-Public Use
  Company Number: CH-TEVA-2019-CH-1040679

PATIENT
  Age: 33 Year

DRUGS (2)
  1. PHOSPHONORM [Suspect]
     Active Substance: ALUMINUM CHLOROHYDRATE
     Dosage: 900 MILLIGRAM DAILY;
     Route: 065
  2. METFORMIN [Suspect]
     Active Substance: METFORMIN HYDROCHLORIDE
     Dosage: 1500 MILLIGRAM DAILY;
     Route: 065

REACTIONS (3)
  - Lactic acidosis [Unknown]
  - Product dispensing error [Unknown]
  - Wrong product administered [Unknown]
